FAERS Safety Report 16686373 (Version 2)
Quarter: 2019Q3

REPORT INFORMATION
  Report Type: Report from Study
  Country: None (occurrence: US)
  Receive Date: 20190809
  Receipt Date: 20190813
  Transmission Date: 20191004
  Serious: Yes (Death, Hospitalization)
  Sender: FDA-Public Use
  Company Number: US-INSMED, INC.-US-INS-19-02342

PATIENT
  Sex: Male

DRUGS (2)
  1. ARIKAYCE [Suspect]
     Active Substance: AMIKACIN
     Indication: PRODUCT USED FOR UNKNOWN INDICATION
     Route: 055
  2. LAMIRA NEBULIZER SYSTEM [Suspect]
     Active Substance: DEVICE

REACTIONS (2)
  - Death [Fatal]
  - Hospitalisation [Unknown]
